FAERS Safety Report 6634227-5 (Version None)
Quarter: 2010Q1

REPORT INFORMATION
  Report Type: 
  Country: None (occurrence: None)
  Receive Date: 20100311
  Receipt Date: 20100311
  Transmission Date: 20100710
  Serious: No
  Sender: FDA-Public Use
  Company Number: None

PATIENT
  Sex: Female
  Weight: 54.4316 kg

DRUGS (1)
  1. FORTEO [Suspect]
     Indication: OSTEOPOROSIS
     Dosage: 20 MCG DAILY SQ
     Route: 058
     Dates: start: 20100210, end: 20100222

REACTIONS (5)
  - FATIGUE [None]
  - HEADACHE [None]
  - HYPERCALCAEMIA [None]
  - PAIN IN EXTREMITY [None]
  - PALPITATIONS [None]
